FAERS Safety Report 11697491 (Version 2)
Quarter: 2017Q2

REPORT INFORMATION
  Report Type: Spontaneous
  Country: US (occurrence: US)
  Receive Date: 20151104
  Receipt Date: 20170621
  Transmission Date: 20170829
  Serious: Yes (Death)
  Sender: FDA-Public Use
  Company Number: US-PFIZER INC-2015342960

PATIENT
  Age: 63 Year
  Sex: Male
  Weight: 75 kg

DRUGS (3)
  1. PREDNISONE. [Concomitant]
     Active Substance: PREDNISONE
     Dosage: UNKNOWN DOSE, DAILY
  2. RAPAMUNE [Suspect]
     Active Substance: SIROLIMUS
     Dosage: ONE 1 MG TABLET PER DAY
     Route: 048
  3. RAPAMUNE [Suspect]
     Active Substance: SIROLIMUS
     Indication: LUNG TRANSPLANT REJECTION
     Dosage: 2 MG, ONCE PER DAY EVERY MORNING
     Route: 048
     Dates: start: 201410

REACTIONS (4)
  - Myocardial infarction [Fatal]
  - Headache [Unknown]
  - Product use in unapproved indication [Unknown]
  - Malaise [Unknown]

NARRATIVE: CASE EVENT DATE: 20151009
